FAERS Safety Report 15166962 (Version 1)
Quarter: 2018Q3

REPORT INFORMATION
  Report Type: Spontaneous
  Country: US (occurrence: US)
  Receive Date: 20180719
  Receipt Date: 20180719
  Transmission Date: 20181010
  Serious: No
  Sender: FDA-Public Use
  Company Number: US-TEVA-2018-US-928936

PATIENT
  Age: 21 Year
  Sex: Male

DRUGS (1)
  1. BUSPIRONE [Suspect]
     Active Substance: BUSPIRONE HYDROCHLORIDE

REACTIONS (4)
  - Drug ineffective [Unknown]
  - Product odour abnormal [Unknown]
  - Product storage error [Unknown]
  - Anxiety [Unknown]

NARRATIVE: CASE EVENT DATE: 20180629
